FAERS Safety Report 25380550 (Version 3)
Quarter: 2025Q3

REPORT INFORMATION
  Report Type: Spontaneous
  Country: RS (occurrence: RS)
  Receive Date: 20250530
  Receipt Date: 20250802
  Transmission Date: 20251021
  Serious: Yes (Hospitalization)
  Sender: ALEXION PHARMACEUTICALS
  Company Number: RS-ASTRAZENECA-202505GLO021208RS

PATIENT
  Sex: Female

DRUGS (13)
  1. SYMBICORT [Suspect]
     Active Substance: BUDESONIDE\FORMOTEROL FUMARATE DIHYDRATE
     Indication: Asthma
     Dosage: 1 DOSAGE FORM, BID
     Dates: start: 200802
  2. SYMBICORT [Suspect]
     Active Substance: BUDESONIDE\FORMOTEROL FUMARATE DIHYDRATE
     Indication: Chronic sinusitis
  3. CICLESONIDE [Concomitant]
     Active Substance: CICLESONIDE
     Indication: Asthma
     Dosage: 2 DOSAGE FORM, QD IN THE MORNING
  4. CICLESONIDE [Concomitant]
     Active Substance: CICLESONIDE
     Indication: Chronic sinusitis
  5. MONTELUKAST [Concomitant]
     Active Substance: MONTELUKAST
     Indication: Asthma
     Dosage: 1 DOSAGE FORM, QD IN THE EVENING
  6. MONTELUKAST [Concomitant]
     Active Substance: MONTELUKAST
     Indication: Chronic sinusitis
  7. FENOTEROL\IPRATROPIUM BROMIDE [Concomitant]
     Active Substance: FENOTEROL\IPRATROPIUM BROMIDE
     Indication: Asthma
  8. FENOTEROL\IPRATROPIUM BROMIDE [Concomitant]
     Active Substance: FENOTEROL\IPRATROPIUM BROMIDE
     Indication: Chronic sinusitis
  9. MOMETASONE [Concomitant]
     Active Substance: MOMETASONE
     Indication: Asthma
  10. MOMETASONE [Concomitant]
     Active Substance: MOMETASONE
     Indication: Chronic sinusitis
  11. PREDNISONE [Concomitant]
     Active Substance: PREDNISONE
  12. AMINOPHYLLINE [Concomitant]
     Active Substance: AMINOPHYLLINE
  13. TIOTROPIUM [Concomitant]
     Active Substance: TIOTROPIUM
     Dosage: 1 DOSAGE FORM, QD
     Dates: start: 201004

REACTIONS (1)
  - Asthma [Unknown]

NARRATIVE: CASE EVENT DATE: 20231201
